FAERS Safety Report 4553150-3 (Version None)
Quarter: 2005Q1

REPORT INFORMATION
  Report Type: 
  Country: None (occurrence: None)
  Receive Date: 20050114
  Receipt Date: 20040115
  Transmission Date: 20050727
  Serious: Yes (Other)
  Sender: FDA-Public Use
  Company Number: FR-GLAXOSMITHKLINE-B0320004A

PATIENT
  Age: 33 Year
  Sex: Female

DRUGS (3)
  1. ZYBAN [Suspect]
     Indication: SMOKING CESSATION THERAPY
     Dosage: 150MG PER DAY
     Route: 048
     Dates: start: 20031217, end: 20040107
  2. TIAPROFENIC ACID [Suspect]
     Indication: LYMPHADENOPATHY
     Route: 048
     Dates: start: 20040104, end: 20040106
  3. ASPEGIC 325 [Suspect]
     Indication: LYMPHADENOPATHY
     Route: 048
     Dates: start: 20040104, end: 20040106

REACTIONS (20)
  - ANXIETY [None]
  - APTYALISM [None]
  - ASTHENIA [None]
  - CYTOLYTIC HEPATITIS [None]
  - DERMATITIS EXFOLIATIVE [None]
  - HYPERSENSITIVITY [None]
  - HYPOTENSION [None]
  - INFLAMMATION [None]
  - INSOMNIA [None]
  - LEUKOPENIA [None]
  - LYMPHADENOPATHY [None]
  - NAUSEA [None]
  - PAINFUL RESPIRATION [None]
  - PRURITUS [None]
  - PURPURA [None]
  - RASH MACULO-PAPULAR [None]
  - RASH MORBILLIFORM [None]
  - RASH SCARLATINIFORM [None]
  - THROMBOCYTOPENIA [None]
  - TREMOR [None]
